FAERS Safety Report 11991683 (Version 2)
Quarter: 2016Q2

REPORT INFORMATION
  Report Type: Spontaneous
  Country: US (occurrence: US)
  Receive Date: 20160203
  Receipt Date: 20160609
  Transmission Date: 20160815
  Serious: Yes (Other)
  Sender: FDA-Public Use
  Company Number: US-JNJFOC-20160106132

PATIENT
  Sex: Male

DRUGS (3)
  1. RISPERDAL [Suspect]
     Active Substance: RISPERIDONE
     Indication: SCHIZOPHRENIA
     Dosage: VARYING DOSES OF 2MG-3MG
     Route: 048
     Dates: start: 2013, end: 2014
  2. RISPERDAL [Suspect]
     Active Substance: RISPERIDONE
     Indication: PSYCHOTIC DISORDER
     Dosage: VARYING DOSES OF 2MG-3MG
     Route: 048
     Dates: start: 2013, end: 2014
  3. RISPERDAL [Suspect]
     Active Substance: RISPERIDONE
     Indication: MANIA
     Dosage: VARYING DOSES OF 2MG-3MG
     Route: 048
     Dates: start: 2013, end: 2014

REACTIONS (8)
  - Tardive dyskinesia [Unknown]
  - Motor dysfunction [Unknown]
  - Cognitive disorder [Unknown]
  - Extrapyramidal disorder [Unknown]
  - Neuroleptic malignant syndrome [Unknown]
  - Disturbance in attention [Unknown]
  - Gynaecomastia [Unknown]
  - Abnormal weight gain [Unknown]

NARRATIVE: CASE EVENT DATE: 2013
